FAERS Safety Report 4706053-5 (Version None)
Quarter: 2005Q2

REPORT INFORMATION
  Report Type: 
  Country: None (occurrence: None)
  Receive Date: 20050624
  Receipt Date: 20050223
  Transmission Date: 20051028
  Serious: No
  Sender: FDA-Public Use
  Company Number: 05H-163-0292202-00

PATIENT
  Age: 78 Year
  Sex: Male

DRUGS (1)
  1. HEPARIN SODIUM [Suspect]
     Indication: CORONARY ARTERY DISEASE
     Dosage: 2000 UNITS/HR, INTRAVENOUS
     Route: 042
     Dates: start: 20050109, end: 20050109

REACTIONS (2)
  - ACTIVATED PARTIAL THROMBOPLASTIN TIME PROLONGED [None]
  - MEDICATION ERROR [None]
